FAERS Safety Report 9795468 (Version 1)
Quarter: 2014Q1

REPORT INFORMATION
  Report Type: Spontaneous
  Country: US (occurrence: US)
  Receive Date: 20140103
  Receipt Date: 20140103
  Transmission Date: 20141002
  Serious: Yes (Hospitalization)
  Sender: FDA-Public Use
  Company Number: US-BAYER-2014-000345

PATIENT
  Age: 24 Year
  Sex: Female
  Weight: 63.95 kg

DRUGS (5)
  1. YAZ [Suspect]
  2. LORTAB [Concomitant]
     Dosage: 5/500 MG
     Route: 048
  3. AMNESTEEM [Concomitant]
     Dosage: 40 MG, UNK
     Route: 048
  4. ACCUTANE [Concomitant]
     Indication: ACNE
     Dosage: 40-120 MG BID
     Route: 048
  5. VICODIN [Concomitant]

REACTIONS (1)
  - Pulmonary embolism [Recovered/Resolved]
